FAERS Safety Report 16650568 (Version 1)
Quarter: 2019Q3

REPORT INFORMATION
  Report Type: Spontaneous
  Country: US (occurrence: US)
  Receive Date: 20190617
  Receipt Date: 20190617
  Transmission Date: 20191004
  Serious: Yes (Other)
  Sender: FDA-Public Use
  Company Number: None

PATIENT
  Age: 61 Year
  Sex: Male
  Weight: 135.62 kg

DRUGS (2)
  1. NIFEDIPINE. [Suspect]
     Active Substance: NIFEDIPINE
     Indication: TACHYCARDIA
     Route: 048
  2. NIFEDIPINE. [Suspect]
     Active Substance: NIFEDIPINE
     Indication: NERVOUSNESS

REACTIONS (5)
  - Nervousness [None]
  - Anxiety [None]
  - Palpitations [None]
  - Product substitution issue [None]
  - Tachycardia [None]

NARRATIVE: CASE EVENT DATE: 20140202
